FAERS Safety Report 8813640 (Version 3)
Quarter: 2017Q3

REPORT INFORMATION
  Report Type: Spontaneous
  Country: US (occurrence: US)
  Receive Date: 20120927
  Receipt Date: 20170817
  Transmission Date: 20171128
  Serious: Yes (Other)
  Sender: FDA-Public Use
  Company Number: US-MERCK-1209USA009470

PATIENT
  Sex: Female

DRUGS (10)
  1. BONIVA [Suspect]
     Active Substance: IBANDRONATE SODIUM
     Indication: OSTEOPOROSIS
     Dosage: UNK
     Route: 048
  2. CHONDROITIN SULFATE SODIUM (+) GLUCOSAMINE SULFATE [Concomitant]
  3. FOLIC ACID. [Concomitant]
     Active Substance: FOLIC ACID
  4. ASPIRIN. [Concomitant]
     Active Substance: ASPIRIN
  5. CALCIUM (UNSPECIFIED) [Concomitant]
     Active Substance: CALCIUM
  6. CYANOCOBALAMIN. [Concomitant]
     Active Substance: CYANOCOBALAMIN
  7. VITAMIN D [Concomitant]
     Active Substance: CHOLECALCIFEROL
  8. FOSAMAX [Suspect]
     Active Substance: ALENDRONATE SODIUM
     Indication: OSTEOPOROSIS
     Dosage: UNK, UNKNOWN
     Route: 048
     Dates: start: 1995, end: 200508
  9. OMEGA-3 MARINE TRIGLYCERIDES [Concomitant]
     Active Substance: FISH OIL
  10. ZANTAC [Concomitant]
     Active Substance: RANITIDINE HYDROCHLORIDE
     Dosage: 300 MG, TAKEN WITH ASPIRIN

REACTIONS (10)
  - Wrist fracture [Unknown]
  - Back pain [Unknown]
  - Patella fracture [Unknown]
  - Scoliosis [Unknown]
  - Femur fracture [Recovered/Resolved]
  - Pain in extremity [Unknown]
  - Bone pain [Unknown]
  - Laceration [Recovered/Resolved]
  - Herpes zoster [Unknown]
  - Osteoarthritis [Unknown]

NARRATIVE: CASE EVENT DATE: 2001
